FAERS Safety Report 9530288 (Version 4)
Quarter: 2014Q3

REPORT INFORMATION
  Report Type: Report from Study
  Country: FR (occurrence: FR)
  Receive Date: 20130917
  Receipt Date: 20140818
  Transmission Date: 20150326
  Serious: Yes (Death, Hospitalization)
  Sender: FDA-Public Use
  Company Number: FR-EXELIXIS-XL18413003290

PATIENT
  Age: 71 Year
  Sex: Male
  Weight: 80 kg

DRUGS (16)
  1. XL184 [Suspect]
     Active Substance: CABOZANTINIB
     Dosage: 40 MG, QD
     Route: 048
     Dates: start: 2013, end: 20130908
  2. MOPRAL [Concomitant]
     Active Substance: OMEPRAZOLE SODIUM
  3. IDEOS [Concomitant]
     Active Substance: CALCIUM CARBONATE\CHOLECALCIFEROL
  4. ENANTONE LP [Concomitant]
     Active Substance: LEUPROLIDE ACETATE
  5. PREDNISONE. [Concomitant]
     Active Substance: PREDNISONE
  6. DOLIPRANE [Concomitant]
     Active Substance: ACETAMINOPHEN
  7. TRANSIPEG [Concomitant]
     Active Substance: POLYETHYLENE GLYCOL 3350
  8. FRAGMINE [Concomitant]
     Active Substance: DALTEPARIN SODIUM
  9. FORTIMEL [Concomitant]
     Active Substance: DIETARY SUPPLEMENT
  10. ALTEIS [Concomitant]
     Active Substance: OLMESARTAN MEDOXOMIL
  11. ZOLPIDEM [Concomitant]
     Active Substance: ZOLPIDEM\ZOLPIDEM TARTRATE
  12. XL184 [Suspect]
     Active Substance: CABOZANTINIB
     Indication: PROSTATE CANCER
     Dosage: 60 MG, QD
     Route: 048
     Dates: start: 20130225, end: 2013
  13. MAGNESIUM [Concomitant]
     Active Substance: MAGNESIUM
  14. INEXIUM [Concomitant]
     Active Substance: ESOMEPRAZOLE
  15. OXYNORM [Concomitant]
     Active Substance: OXYCODONE HYDROCHLORIDE
  16. XL184 [Suspect]
     Active Substance: CABOZANTINIB
     Indication: PROSTATE CANCER
     Dosage: 5 MG, BID
     Route: 048
     Dates: start: 20130225, end: 20130908

REACTIONS (3)
  - Lung infection [Not Recovered/Not Resolved]
  - General physical health deterioration [Fatal]
  - Anaemia [Recovered/Resolved]

NARRATIVE: CASE EVENT DATE: 20130907
